FAERS Safety Report 7775222-2 (Version None)
Quarter: 2011Q3

REPORT INFORMATION
  Report Type: 
  Country: None (occurrence: None)
  Receive Date: 20110923
  Receipt Date: 20110915
  Transmission Date: 20111222
  Serious: Yes (Hospitalization, Disabling, Other)
  Sender: FDA-Public Use
  Company Number: US-MERCK-1102USA00333

PATIENT
  Age: 62 Year
  Sex: Female
  Weight: 84 kg

DRUGS (25)
  1. VITAMINS (UNSPECIFIED) [Concomitant]
     Route: 065
     Dates: start: 19980101
  2. VIOXX [Concomitant]
     Route: 048
     Dates: end: 20050101
  3. ALBUTEROL [Concomitant]
     Route: 055
  4. FOSAMAX [Suspect]
     Route: 048
     Dates: start: 20080101, end: 20100101
  5. SYNTHROID [Concomitant]
     Indication: HYPOTHYROIDISM
     Route: 048
     Dates: end: 20070101
  6. LORTAB [Concomitant]
     Route: 065
  7. LISINOPRIL [Concomitant]
     Route: 065
  8. OMEGA-3 MARINE TRIGLYCERIDES [Concomitant]
     Route: 065
  9. FOSAMAX [Suspect]
     Route: 048
     Dates: start: 20060601
  10. HYDROCHLOROTHIAZIDE [Concomitant]
     Route: 048
  11. ASPIRIN [Concomitant]
     Route: 065
  12. FOSAMAX [Suspect]
     Indication: OSTEOPOROSIS
     Route: 048
     Dates: start: 20030101, end: 20060126
  13. PRAVACHOL [Concomitant]
     Route: 065
  14. VITAMIN D (UNSPECIFIED) [Concomitant]
     Route: 048
  15. COUMADIN [Concomitant]
     Route: 065
  16. PAXIL CR [Concomitant]
     Route: 048
     Dates: start: 20030311
  17. IRON (UNSPECIFIED) AND VITAMINS (UNSPECIFIED) [Concomitant]
     Route: 065
  18. TRAMADOL HYDROCHLORIDE [Concomitant]
     Route: 065
  19. CALCIUM (UNSPECIFIED) AND VITAMIN D (UNSPECIFIED) [Concomitant]
     Route: 065
     Dates: start: 19980101
  20. GASTROINTESTINAL PREPARATIONS (UNSPECIFIED) [Concomitant]
     Route: 065
  21. VICODIN [Concomitant]
     Route: 065
  22. CALCIUM (UNSPECIFIED) [Concomitant]
     Route: 065
  23. HYDROCHLOROTHIAZIDE AND LISINOPRIL [Concomitant]
     Route: 048
  24. OS-CAL + D [Concomitant]
     Route: 065
  25. KLONOPIN [Concomitant]
     Route: 065

REACTIONS (34)
  - OSTEOPOROSIS [None]
  - CONVULSION [None]
  - TACHYCARDIA [None]
  - LOW TURNOVER OSTEOPATHY [None]
  - FEMUR FRACTURE [None]
  - ANXIETY [None]
  - BACK PAIN [None]
  - WRIST FRACTURE [None]
  - PAIN [None]
  - COLON ADENOMA [None]
  - BLOOD POTASSIUM DECREASED [None]
  - MUSCULAR WEAKNESS [None]
  - BONE LOSS [None]
  - ARTHRALGIA [None]
  - LOWER LIMB FRACTURE [None]
  - LUNG DISORDER [None]
  - DEHYDRATION [None]
  - STRESS FRACTURE [None]
  - FALL [None]
  - SCOLIOSIS [None]
  - CHEST PAIN [None]
  - ARTHRITIS [None]
  - OSTEOARTHRITIS [None]
  - ABASIA [None]
  - BLOOD THYROID STIMULATING HORMONE DECREASED [None]
  - HYPERTENSION [None]
  - HYPERLIPIDAEMIA [None]
  - GASTROOESOPHAGEAL REFLUX DISEASE [None]
  - ANAEMIA POSTOPERATIVE [None]
  - MYOCARDIAL ISCHAEMIA [None]
  - LACERATION [None]
  - JOINT LOCK [None]
  - BLOOD THYROID STIMULATING HORMONE INCREASED [None]
  - RADICULOPATHY [None]
